FAERS Safety Report 9242709 (Version 1)
Quarter: 2013Q2

REPORT INFORMATION
  Report Type: Spontaneous
  Country: US (occurrence: US)
  Receive Date: 20130419
  Receipt Date: 20130419
  Transmission Date: 20140414
  Serious: No
  Sender: FDA-Public Use
  Company Number: US-PFIZER INC-2013120380

PATIENT
  Age: 53 Year
  Sex: Male
  Weight: 79.82 kg

DRUGS (3)
  1. VIAGRA [Suspect]
     Indication: ERECTILE DYSFUNCTION
     Dosage: 50 MG (SPLITTING VIAGRA 100MG INTO HALF), AS NEEDED
     Route: 048
     Dates: start: 20130316
  2. LISINOPRIL [Concomitant]
     Dosage: 20 MG, 1X/DAY
  3. AMLODIPINE [Concomitant]
     Dosage: 10 MG, 1X/DAY

REACTIONS (1)
  - Drug effect decreased [Unknown]
